FAERS Safety Report 5232385-0 (Version None)
Quarter: 2007Q1

REPORT INFORMATION
  Report Type: 
  Country: None (occurrence: None)
  Receive Date: 20070205
  Receipt Date: 20070125
  Transmission Date: 20070707
  Serious: Yes (Disabling)
  Sender: FDA-Public Use
  Company Number: 2006-03081

PATIENT
  Age: 74 Year
  Sex: Female
  Weight: 73 kg

DRUGS (3)
  1. VELCADE [Suspect]
     Dates: start: 20060905, end: 20060915
  2. VELCADE [Suspect]
     Dates: start: 20060926, end: 20061006
  3. VELCADE [Suspect]
     Dates: start: 20061031, end: 20061110

REACTIONS (4)
  - BALANCE DISORDER [None]
  - DIZZINESS [None]
  - NEUROTOXICITY [None]
  - PERIPHERAL SENSORY NEUROPATHY [None]
